FAERS Safety Report 17283086 (Version 4)
Quarter: 2020Q2

REPORT INFORMATION
  Report Type: Spontaneous
  Country: US (occurrence: US)
  Receive Date: 20200117
  Receipt Date: 20200610
  Transmission Date: 20200713
  Serious: Yes (Other)
  Sender: FDA-Public Use
  Company Number: US-PFIZER INC-2020020734

PATIENT
  Age: 61 Year
  Sex: Female

DRUGS (2)
  1. LEVOTHYROXINE. [Concomitant]
     Active Substance: LEVOTHYROXINE
     Indication: BASEDOW^S DISEASE
     Dosage: UNK
  2. XELJANZ [Suspect]
     Active Substance: TOFACITINIB CITRATE
     Indication: COLITIS ULCERATIVE
     Dosage: 5 MG, 2X/DAY
     Route: 048
     Dates: start: 201809

REACTIONS (13)
  - Nasopharyngitis [Unknown]
  - Bowel movement irregularity [Unknown]
  - Stress [Unknown]
  - Cough [Unknown]
  - Skin disorder [Unknown]
  - Nephrolithiasis [Unknown]
  - Anxiety [Unknown]
  - Bone density abnormal [Unknown]
  - Product dose omission [Unknown]
  - Oropharyngeal pain [Recovered/Resolved]
  - Urticaria [Recovered/Resolved]
  - Blood cholesterol increased [Unknown]
  - Rash [Unknown]

NARRATIVE: CASE EVENT DATE: 201912
